FAERS Safety Report 5283742-8 (Version None)
Quarter: 2007Q2

REPORT INFORMATION
  Report Type: 
  Country: None (occurrence: None)
  Receive Date: 20070402
  Receipt Date: 20070323
  Transmission Date: 20071010
  Serious: Yes (Hospitalization)
  Sender: FDA-Public Use
  Company Number: FR-GILEAD-2007-0010959

PATIENT
  Age: 76 Year
  Sex: Female
  Weight: 41 kg

DRUGS (4)
  1. HEPSERA [Suspect]
     Indication: HEPATITIS B
     Route: 048
     Dates: start: 20020822, end: 20061001
  2. HEPSERA [Suspect]
     Route: 048
     Dates: start: 20061001, end: 20061222
  3. ZEFFIX [Concomitant]
     Indication: HEPATITIS B
     Route: 048
     Dates: start: 20000101, end: 20020101
  4. ZEFFIX [Concomitant]
     Route: 048
     Dates: start: 20020101, end: 20061222

REACTIONS (5)
  - CREATININE RENAL CLEARANCE DECREASED [None]
  - NO THERAPEUTIC RESPONSE [None]
  - OSTEOMALACIA [None]
  - RENAL TUBULAR DISORDER [None]
  - WRIST FRACTURE [None]
